FAERS Safety Report 6567164-5 (Version None)
Quarter: 2010Q1

REPORT INFORMATION
  Report Type: 
  Country: None (occurrence: None)
  Receive Date: 20100202
  Receipt Date: 20100125
  Transmission Date: 20100710
  Serious: Yes (Hospitalization, Other)
  Sender: FDA-Public Use
  Company Number: HU-PFIZER INC-2010008851

PATIENT
  Age: 57 Year
  Sex: Female

DRUGS (6)
  1. SALAZOPYRIN [Suspect]
     Indication: RHEUMATOID ARTHRITIS
     Dosage: UNK
     Route: 048
     Dates: start: 20090301, end: 20090401
  2. DOMPERIDONE [Concomitant]
  3. APO-FAMOTIDINE [Concomitant]
  4. CONCOR COR [Concomitant]
  5. FOSAVANCE [Concomitant]
  6. MAGNE-B6 [Concomitant]

REACTIONS (7)
  - ABASIA [None]
  - BLOOD TEST ABNORMAL [None]
  - DEPRESSION [None]
  - LEUKOPENIA [None]
  - MUSCULAR WEAKNESS [None]
  - RASH GENERALISED [None]
  - THROMBOCYTOPENIA [None]
